FAERS Safety Report 4978664-3 (Version None)
Quarter: 2006Q2

REPORT INFORMATION
  Report Type: 
  Country: None (occurrence: None)
  Receive Date: 20060414
  Receipt Date: 20060404
  Transmission Date: 20061013
  Serious: Yes (Other)
  Sender: FDA-Public Use
  Company Number: US017285

PATIENT
  Age: 19 Year
  Sex: Male

DRUGS (6)
  1. PROVIGIL [Suspect]
     Indication: CATAPLEXY
     Dosage: 100 MG QAM/PM ORAL
     Route: 048
     Dates: start: 20051101, end: 20060201
  2. PROVIGIL [Suspect]
     Indication: NARCOLEPSY
     Dosage: 100 MG QAM/PM ORAL
     Route: 048
     Dates: start: 20051101, end: 20060201
  3. PROVIGIL [Suspect]
     Indication: CATAPLEXY
     Dosage: 200 MG QAM/PM ORAL
     Route: 048
     Dates: start: 20060201
  4. PROVIGIL [Suspect]
     Indication: NARCOLEPSY
     Dosage: 200 MG QAM/PM ORAL
     Route: 048
     Dates: start: 20060201
  5. LUNESTA [Concomitant]
  6. DIAMOX [Concomitant]

REACTIONS (1)
  - PARALYSIS FLACCID [None]
